FAERS Safety Report 21917848 (Version 4)
Quarter: 2023Q1

REPORT INFORMATION
  Report Type: Report from Study
  Country: US (occurrence: None)
  Receive Date: 20230127
  Receipt Date: 20230317
  Transmission Date: 20230418
  Serious: Yes (Other)
  Sender: FDA-Public Use
  Company Number: US-ROCHE-3268745

PATIENT
  Age: 58 Year
  Sex: Male
  Weight: 88 kg

DRUGS (23)
  1. RANIBIZUMAB [Suspect]
     Active Substance: RANIBIZUMAB
     Indication: Diabetic retinal oedema
     Dosage: DRUG DOSE FIRST ADMINISTERED IS 10 MG/ML? DOSE LAST STUDY DRUG ADMIN ON 19/JAN/2023 PRIOR AE/SAE IS
     Route: 050
     Dates: start: 20210506
  2. RANIBIZUMAB [Suspect]
     Active Substance: RANIBIZUMAB
  3. RANIBIZUMAB [Suspect]
     Active Substance: RANIBIZUMAB
  4. RANIBIZUMAB [Suspect]
     Active Substance: RANIBIZUMAB
  5. RANIBIZUMAB [Suspect]
     Active Substance: RANIBIZUMAB
  6. OXYCODONE [Concomitant]
     Active Substance: OXYCODONE
     Indication: Phantom limb syndrome
     Route: 048
     Dates: start: 202103
  7. TRESIBA [Concomitant]
     Active Substance: INSULIN DEGLUDEC
     Indication: Diabetes mellitus
     Dosage: DRUG DOSE FIRST ADMINISTERED IS 24 U ;ONGOING: YES
     Route: 058
     Dates: start: 202101
  8. FUROSEMIDE [Concomitant]
     Active Substance: FUROSEMIDE
     Indication: Oedema peripheral
     Dosage: DRUG DOSE FIRST ADMINISTERED IS 160 MG/ML ;ONGOING: YES
     Route: 048
     Dates: start: 202102
  9. ATORVASTATIN [Concomitant]
     Active Substance: ATORVASTATIN
     Indication: Hyperlipidaemia
     Dosage: DRUG DOSE FIRST ADMINISTERED IS 40 MG/ML ;ONGOING: YES
     Route: 048
     Dates: start: 201804
  10. LISINOPRIL [Concomitant]
     Active Substance: LISINOPRIL
     Dosage: DRUG DOSE FIRST ADMINISTERED IS 5 MG/ML ;ONGOING: YES
     Route: 048
     Dates: start: 202103
  11. AMLODIPINE [Concomitant]
     Active Substance: AMLODIPINE BESYLATE
     Indication: Hypertension
     Dosage: DRUG DOSE FIRST ADMINISTERED IS 5 MG/ML ;ONGOING: YES
     Route: 048
     Dates: start: 201909
  12. METOPROLOL [Concomitant]
     Active Substance: METOPROLOL
     Indication: Hypertension
     Dosage: DRUG DOSE FIRST ADMINISTERED IS 25 MG/ML ;ONGOING: YES
     Route: 048
     Dates: start: 20210328
  13. PLAVIX [Concomitant]
     Active Substance: CLOPIDOGREL BISULFATE
     Indication: Coronary artery disease
     Dosage: DRUG DOSE FIRST ADMINISTERED IS 75 MG/ML ;ONGOING: YES
     Route: 048
     Dates: start: 20210827
  14. LOPERAMIDE [Concomitant]
     Active Substance: LOPERAMIDE
     Indication: Abdominal discomfort
     Route: 048
     Dates: start: 202201
  15. LOPERAMIDE [Concomitant]
     Active Substance: LOPERAMIDE
     Indication: Dyspepsia
  16. LOPERAMIDE [Concomitant]
     Active Substance: LOPERAMIDE
     Indication: Diarrhoea
  17. LOPERAMIDE [Concomitant]
     Active Substance: LOPERAMIDE
     Indication: Nausea
  18. TIMOLOL [Concomitant]
     Active Substance: TIMOLOL
     Indication: Ocular hypertension
     Route: 061
     Dates: start: 20220829
  19. BRIMONIDINE [Concomitant]
     Active Substance: BRIMONIDINE TARTRATE
     Indication: Ocular hypertension
     Route: 061
     Dates: start: 20220829
  20. RANIBIZUMAB [Concomitant]
     Active Substance: RANIBIZUMAB
     Dosage: DOSE OF STUDY DRUG FIRST ADMINISTERED 6 MG/ML?DOSE LAST STUDY DRUG ADMIN PRIOR AE 6 MG/ML?START DATE
     Route: 050
     Dates: start: 20210506
  21. MOXIFLOXACIN [Concomitant]
     Active Substance: MOXIFLOXACIN
     Route: 061
     Dates: start: 20230119, end: 20230125
  22. AMOXICILLIN [Concomitant]
     Active Substance: AMOXICILLIN
     Indication: Toothache
     Dosage: 500 MG/ML
     Route: 048
     Dates: start: 20230129, end: 20230212
  23. IBUPROFEN [Concomitant]
     Active Substance: IBUPROFEN
     Indication: Toothache
     Dosage: 800 MG/ML
     Route: 048
     Dates: start: 20230129, end: 20230211

REACTIONS (2)
  - Device issue [Unknown]
  - No adverse event [Unknown]

NARRATIVE: CASE EVENT DATE: 20230119
